FAERS Safety Report 10374991 (Version 4)
Quarter: 2015Q1

REPORT INFORMATION
  Report Type: Spontaneous
  Country: BR (occurrence: BR)
  Receive Date: 20140811
  Receipt Date: 20150211
  Transmission Date: 20150720
  Serious: Yes (Other)
  Sender: FDA-Public Use
  Company Number: BR-SA-2014SA105243

PATIENT
  Sex: Female
  Weight: 90 kg

DRUGS (6)
  1. AUTOPEN 24 [Concomitant]
     Active Substance: DEVICE
     Indication: TYPE 1 DIABETES MELLITUS
     Dates: start: 2010
  2. PRISTIQ EXTENDED RELEASE [Concomitant]
     Active Substance: DESVENLAFAXINE SUCCINATE
     Indication: DEPRESSION
     Dosage: 1 TABLET ONCE A DAY BEFORE SLEEP
     Route: 048
     Dates: start: 2007
  3. NAPRIX [Concomitant]
     Active Substance: RAMIPRIL
     Indication: LABYRINTHITIS
     Dosage: 1 TABLET ONCE A WEEK, BEFORE LUNCH
     Route: 048
     Dates: start: 2008
  4. LANTUS [Suspect]
     Active Substance: INSULIN GLARGINE
     Indication: TYPE 1 DIABETES MELLITUS
     Dosage: DOSE:30 IU BEFORE BREAKFAST AND 15 IU BEFORE DINNER
     Route: 065
     Dates: start: 2010
  5. HYDROCHLOROTHIAZIDE. [Concomitant]
     Active Substance: HYDROCHLOROTHIAZIDE
     Indication: BLOOD PRESSURE
     Dosage: 1 TABLET ONCE A DAY AT BREAKFAST
     Route: 048
     Dates: start: 201406
  6. BENICAR [Concomitant]
     Active Substance: OLMESARTAN MEDOXOMIL
     Indication: BLOOD PRESSURE
     Dosage: ONE TAB TWICE A DAY MORNING AND NIGHT
     Route: 048
     Dates: start: 2006

REACTIONS (4)
  - Off label use [Unknown]
  - Eye swelling [Recovered/Resolved]
  - Eye haemorrhage [Not Recovered/Not Resolved]
  - Vision blurred [Recovered/Resolved]

NARRATIVE: CASE EVENT DATE: 2010
